FAERS Safety Report 10664586 (Version 1)
Quarter: 2014Q4

REPORT INFORMATION
  Report Type: Spontaneous
  Country: CN (occurrence: CN)
  Receive Date: 20141219
  Receipt Date: 20141219
  Transmission Date: 20150529
  Serious: Yes (Death, Other)
  Sender: FDA-Public Use
  Company Number: CN-BAYER-2014-184180

PATIENT
  Age: 37 Year
  Sex: Male

DRUGS (9)
  1. CAMPTOTHECIN [Concomitant]
     Active Substance: CAMPTOTHECIN
     Indication: HEPATOCELLULAR CARCINOMA
     Dosage: 20 MG, UNK
     Route: 013
  2. SORAFENIB (RAF KINASE INHIBITOR) [Suspect]
     Active Substance: SORAFENIB
     Indication: HEPATOCELLULAR CARCINOMA
     Dosage: 400 MG, BID
     Route: 048
  3. FLOXURIDINE. [Concomitant]
     Active Substance: FLOXURIDINE
     Indication: HEPATOCELLULAR CARCINOMA
     Dosage: 1000 MG, UNK
     Route: 013
  4. DOXORUBICIN [Concomitant]
     Active Substance: DOXORUBICIN
     Indication: HEPATOCELLULAR CARCINOMA
     Dosage: 40 MG, UNK
     Route: 013
  5. IODIZED OIL [Concomitant]
     Active Substance: IODIZED OIL
     Indication: HEPATOCELLULAR CARCINOMA
     Dosage: 5 ML, UNK
     Route: 013
  6. CAMPTOTHECIN [Concomitant]
     Active Substance: CAMPTOTHECIN
     Indication: HEPATOCELLULAR CARCINOMA
     Dosage: 20 MG, UNK
     Route: 013
  7. IODIZED OIL [Concomitant]
     Active Substance: IODIZED OIL
     Indication: HEPATOCELLULAR CARCINOMA
     Dosage: 5 ML, UNK
     Route: 013
  8. DOXORUBICIN [Concomitant]
     Active Substance: DOXORUBICIN
     Indication: HEPATOCELLULAR CARCINOMA
     Dosage: 40 MG, UNK
     Route: 013
  9. FLOXURIDINE. [Concomitant]
     Active Substance: FLOXURIDINE
     Indication: HEPATOCELLULAR CARCINOMA
     Dosage: 1000 MG, UNK
     Route: 013

REACTIONS (6)
  - Hepatic failure [Fatal]
  - Portal hypertension [None]
  - Gastric varices [None]
  - Ascites [None]
  - Palmar-plantar erythrodysaesthesia syndrome [Recovered/Resolved]
  - Hepatocellular carcinoma [None]
